FAERS Safety Report 7731462-X (Version None)
Quarter: 2011Q3

REPORT INFORMATION
  Report Type: 
  Country: None (occurrence: None)
  Receive Date: 20110906
  Receipt Date: 20110822
  Transmission Date: 20111222
  Serious: Yes (Hospitalization)
  Sender: FDA-Public Use
  Company Number: HU-WATSON-2011-13622

PATIENT

DRUGS (4)
  1. FUROSEMIDE [Suspect]
     Indication: OEDEMA PERIPHERAL
     Dosage: UNK
  2. ACE INHIBITORS [Suspect]
     Indication: OEDEMA PERIPHERAL
     Dosage: UNK
  3. POTASSIUM CHLORIDE EXTENDED-RELEASE (WATSON LABORATORIES) [Suspect]
     Indication: DIURETIC THERAPY
     Dosage: UNK
  4. SPIRONOLACTONE [Suspect]
     Indication: OEDEMA PERIPHERAL
     Dosage: UNK

REACTIONS (5)
  - HYPOTENSION [None]
  - RENAL IMPAIRMENT [None]
  - HYPERKALAEMIA [None]
  - POTENTIATING DRUG INTERACTION [None]
  - VOLUME BLOOD DECREASED [None]
